FAERS Safety Report 10794933 (Version 1)
Quarter: 2015Q1

REPORT INFORMATION
  Report Type: Spontaneous
  Country: US (occurrence: US)
  Receive Date: 20150214
  Receipt Date: 20150214
  Transmission Date: 20150721
  Serious: No
  Sender: FDA-Public Use
  Company Number: US-GLAXOSMITHKLINE-A1067207A

PATIENT

DRUGS (1)
  1. ALLI [Suspect]
     Active Substance: ORLISTAT
     Indication: WEIGHT DECREASED
     Route: 048
     Dates: start: 201311

REACTIONS (9)
  - Abdominal pain [Not Recovered/Not Resolved]
  - Ill-defined disorder [Not Recovered/Not Resolved]
  - Treatment noncompliance [Unknown]
  - Faecal incontinence [Not Recovered/Not Resolved]
  - Drug ineffective [Unknown]
  - Rectal discharge [Unknown]
  - Product quality issue [Unknown]
  - Faeces discoloured [Not Recovered/Not Resolved]
  - Weight increased [Not Recovered/Not Resolved]
